FAERS Safety Report 9351535 (Version 1)
Quarter: 2013Q2

REPORT INFORMATION
  Report Type: Spontaneous
  Country: US (occurrence: US)
  Receive Date: 20130617
  Receipt Date: 20130617
  Transmission Date: 20140414
  Serious: No
  Sender: FDA-Public Use
  Company Number: US-PFIZER INC-2013178136

PATIENT
  Age: 14 Year
  Sex: Male
  Weight: 66 kg

DRUGS (2)
  1. GENOTROPIN [Suspect]
     Indication: BODY HEIGHT BELOW NORMAL
     Dosage: UNK
  2. LETROZOLE [Concomitant]
     Indication: OFF LABEL USE
     Dosage: 2.5 MG, 1X/DAY

REACTIONS (4)
  - Fat tissue increased [Not Recovered/Not Resolved]
  - Finger deformity [Not Recovered/Not Resolved]
  - Hair disorder [Not Recovered/Not Resolved]
  - Depression [Not Recovered/Not Resolved]
